FAERS Safety Report 5485207-7 (Version None)
Quarter: 2007Q4

REPORT INFORMATION
  Report Type: 
  Country: None (occurrence: None)
  Receive Date: 20071009
  Receipt Date: 20071009
  Transmission Date: 20080405
  Serious: No
  Sender: FDA-Public Use
  Company Number: None

PATIENT
  Age: 59 Year
  Sex: Male

DRUGS (1)
  1. DOXAZOSIN MESYLATE [Suspect]
     Dosage: 2MG HS PO
     Route: 048
     Dates: start: 20070906, end: 20070912

REACTIONS (2)
  - HYPOTENSION [None]
  - PALPITATIONS [None]
